FAERS Safety Report 24584722 (Version 1)
Quarter: 2024Q4

REPORT INFORMATION
  Report Type: Spontaneous
  Country: ES (occurrence: ES)
  Receive Date: 20241106
  Receipt Date: 20241106
  Transmission Date: 20250115
  Serious: Yes (Other)
  Sender: BRACCO
  Company Number: None

PATIENT
  Sex: Male

DRUGS (1)
  1. IOPAMIRO [Suspect]
     Active Substance: IOPAMIDOL
     Indication: Abdomen scan
     Dosage: UNK, SINGLE
     Route: 042
     Dates: start: 20240924, end: 20240924

REACTIONS (3)
  - Administration site extravasation [Unknown]
  - Instillation site pain [Unknown]
  - Product administration error [Unknown]

NARRATIVE: CASE EVENT DATE: 20240924
